FAERS Safety Report 16180480 (Version 1)
Quarter: 2019Q2

REPORT INFORMATION
  Report Type: Spontaneous
  Country: US (occurrence: US)
  Receive Date: 20190410
  Receipt Date: 20190410
  Transmission Date: 20190711
  Serious: No
  Sender: FDA-Public Use
  Company Number: US-SA-2019SA099303

PATIENT
  Age: 67 Year
  Sex: Female

DRUGS (2)
  1. LANTUS [Suspect]
     Active Substance: INSULIN GLARGINE
     Indication: TYPE 1 DIABETES MELLITUS
     Dosage: 22 U, QD, DAILY
  2. LANTUS [Suspect]
     Active Substance: INSULIN GLARGINE
     Dosage: 25-26 UNITS DAILY

REACTIONS (1)
  - Blood glucose decreased [Recovered/Resolved]
